FAERS Safety Report 20953354 (Version 6)
Quarter: 2022Q4

REPORT INFORMATION
  Report Type: Report from Study
  Country: US (occurrence: US)
  Receive Date: 20220613
  Receipt Date: 20221222
  Transmission Date: 20230113
  Serious: No
  Sender: FDA-Public Use
  Company Number: US-NOVARTISTESTPH-NVSC2022US134774

PATIENT
  Sex: Female

DRUGS (1)
  1. COSENTYX [Suspect]
     Active Substance: SECUKINUMAB
     Indication: Ankylosing spondylitis
     Dosage: 300 MG, QW (FOR 5 WEEKS THEN ONCE EVERY 4 WEEKS)
     Route: 058

REACTIONS (3)
  - Fatigue [Recovered/Resolved]
  - Pain [Recovering/Resolving]
  - Drug ineffective [Unknown]
